FAERS Safety Report 7459517-8 (Version None)
Quarter: 2011Q2

REPORT INFORMATION
  Report Type: 
  Country: None (occurrence: None)
  Receive Date: 20110504
  Receipt Date: 20110504
  Transmission Date: 20111010
  Serious: Yes (Hospitalization)
  Sender: FDA-Public Use
  Company Number: None

PATIENT
  Sex: Female
  Weight: 83.8 kg

DRUGS (3)
  1. HERCEPTIN [Suspect]
     Dosage: 164 MG
     Dates: end: 20110420
  2. CARBOPLATIN [Suspect]
     Dosage: 416 MG
     Dates: end: 20110420
  3. TAXOTERE [Suspect]
     Dosage: 110 MG
     Dates: end: 20110420

REACTIONS (4)
  - GASTRIC ULCER [None]
  - BLOOD PRESSURE ABNORMAL [None]
  - HAEMATOCHEZIA [None]
  - GASTROINTESTINAL HAEMORRHAGE [None]
